FAERS Safety Report 6657575-1 (Version None)
Quarter: 2010Q1

REPORT INFORMATION
  Report Type: 
  Country: None (occurrence: None)
  Receive Date: 20100326
  Receipt Date: 20100318
  Transmission Date: 20100710
  Serious: Yes (Other)
  Sender: FDA-Public Use
  Company Number: 20108450

PATIENT
  Sex: Female

DRUGS (1)
  1. LIORESAL [Suspect]
     Indication: MUSCLE SPASTICITY
     Dosage: DAILY, INTRATHECAL
     Route: 037

REACTIONS (5)
  - CATHETER SITE RELATED REACTION [None]
  - INFECTION [None]
  - MENINGITIS [None]
  - SPINAL MYELOGRAM ABNORMAL [None]
  - UNEVALUABLE EVENT [None]
